FAERS Safety Report 15023868 (Version 2)
Quarter: 2018Q2

REPORT INFORMATION
  Report Type: Spontaneous
  Country: ES (occurrence: ES)
  Receive Date: 20180618
  Receipt Date: 20180629
  Transmission Date: 20180711
  Serious: Yes (Other)
  Sender: FDA-Public Use
  Company Number: ES-UCBSA-2018025712

PATIENT
  Sex: Female
  Weight: 41 kg

DRUGS (2)
  1. KEPPRA [Suspect]
     Active Substance: LEVETIRACETAM
     Indication: EPILEPSY
     Dosage: 500 MG, 3X/DAY (TID)
  2. BRIVIACT [Suspect]
     Active Substance: BRIVARACETAM
     Indication: EPILEPSY
     Dosage: 50 MG, 2X/DAY (BID)
     Dates: start: 201803, end: 2018

REACTIONS (6)
  - Abnormal behaviour [Not Recovered/Not Resolved]
  - Hypoxia [Unknown]
  - Somnolence [Not Recovered/Not Resolved]
  - Arrhythmia [Unknown]
  - Intentional product misuse [Unknown]
  - Hallucination, visual [Not Recovered/Not Resolved]

NARRATIVE: CASE EVENT DATE: 201803
